FAERS Safety Report 5133861-1 (Version None)
Quarter: 2006Q4

REPORT INFORMATION
  Report Type: 
  Country: None (occurrence: None)
  Receive Date: 20061018
  Receipt Date: 20060927
  Transmission Date: 20070319
  Serious: Yes (Hospitalization, Other)
  Sender: FDA-Public Use
  Company Number: US200609007079

PATIENT
  Age: 23 Year
  Sex: Female

DRUGS (1)
  1. CYMBALTA [Suspect]
     Indication: IRRITABLE BOWEL SYNDROME
     Dosage: 60 MG
     Dates: start: 20050101

REACTIONS (4)
  - DECREASED ACTIVITY [None]
  - MENTAL DISORDER [None]
  - PARAESTHESIA [None]
  - SUICIDE ATTEMPT [None]
